FAERS Safety Report 10388994 (Version 1)
Quarter: 2014Q3

REPORT INFORMATION
  Report Type: Spontaneous
  Country: NL (occurrence: NL)
  Receive Date: 20140816
  Receipt Date: 20140816
  Transmission Date: 20150326
  Serious: Yes (Other)
  Sender: FDA-Public Use
  Company Number: NL-BAUSCH-BL-2014-003877

PATIENT
  Sex: Female

DRUGS (2)
  1. YELLOX 0.9 MG/ML EYE DROPS, SOLUTION [Suspect]
     Active Substance: BROMFENAC SODIUM
     Indication: POSTOPERATIVE CARE
     Dates: start: 20140507, end: 20140605
  2. XALACOM OOGDRUPPELS FLACON 2,5 ML [Concomitant]
     Indication: GLAUCOMA

REACTIONS (2)
  - Medication error [Unknown]
  - Corneal perforation [Unknown]

NARRATIVE: CASE EVENT DATE: 2014
